FAERS Safety Report 13017225 (Version 3)
Quarter: 2017Q1

REPORT INFORMATION
  Report Type: Spontaneous
  Country: US (occurrence: US)
  Receive Date: 20161212
  Receipt Date: 20170110
  Transmission Date: 20170428
  Serious: Yes (Disabling, Other)
  Sender: FDA-Public Use
  Company Number: US-BAUSCH-BL-2016-030969

PATIENT
  Age: 75 Year
  Sex: Male

DRUGS (1)
  1. ALDARA [Suspect]
     Active Substance: IMIQUIMOD
     Indication: SQUAMOUS CELL CARCINOMA
     Dosage: ONE APPLICATION ONCE A DAY (MONDAY THROUGH FRIDAY)
     Route: 061
     Dates: start: 2016, end: 201612

REACTIONS (3)
  - Off label use [Unknown]
  - Carotid artery occlusion [Unknown]
  - Blindness unilateral [Not Recovered/Not Resolved]

NARRATIVE: CASE EVENT DATE: 2016
